FAERS Safety Report 17122654 (Version 1)
Quarter: 2019Q4

REPORT INFORMATION
  Report Type: Report from Study
  Country: CO (occurrence: CO)
  Receive Date: 20191206
  Receipt Date: 20191206
  Transmission Date: 20200122
  Serious: Yes (Death, Hospitalization, Other)
  Sender: FDA-Public Use
  Company Number: CO-ASTRAZENECA-2019SF49269

PATIENT
  Age: 0 Year
  Sex: Male
  Weight: 4 kg

DRUGS (4)
  1. ENALAPRIL [Concomitant]
     Active Substance: ENALAPRIL
     Indication: CARDIAC DISORDER
     Route: 048
     Dates: start: 2019
  2. CHLOROTHIAZIDE. [Concomitant]
     Active Substance: CHLOROTHIAZIDE
     Indication: CARDIAC DISORDER
     Dates: start: 2019
  3. SPIRONOLACTONE. [Concomitant]
     Active Substance: SPIRONOLACTONE
     Indication: DIURETIC THERAPY
     Route: 048
     Dates: start: 2019
  4. SYNAGIS [Suspect]
     Active Substance: PALIVIZUMAB
     Indication: BRONCHOPULMONARY DYSPLASIA
     Route: 030
     Dates: start: 20190524, end: 20190628

REACTIONS (4)
  - Death [Fatal]
  - Pulmonary oedema [Unknown]
  - Patent ductus arteriosus [Unknown]
  - Cardiac operation [Unknown]

NARRATIVE: CASE EVENT DATE: 2019
